FAERS Safety Report 6070039-1 (Version None)
Quarter: 2009Q1

REPORT INFORMATION
  Report Type: 
  Country: None (occurrence: None)
  Receive Date: 20090209
  Receipt Date: 20090202
  Transmission Date: 20090719
  Serious: Yes (Other)
  Sender: FDA-Public Use
  Company Number: PHEH2009US01373

PATIENT
  Sex: Male

DRUGS (1)
  1. TEGRETOL [Suspect]
     Dosage: 200 MG, UNK
     Route: 048
     Dates: start: 19920101

REACTIONS (4)
  - AFFECTIVE DISORDER [None]
  - RENAL DISORDER [None]
  - SPEECH DISORDER [None]
  - THYROID DISORDER [None]
